FAERS Safety Report 4761192-8 (Version None)
Quarter: 2005Q3

REPORT INFORMATION
  Report Type: 
  Country: None (occurrence: None)
  Receive Date: 20050901
  Receipt Date: 20050524
  Transmission Date: 20060218
  Serious: Yes (Hospitalization)
  Sender: FDA-Public Use
  Company Number: 2005FR-00235

PATIENT
  Age: 61 Year
  Sex: Male

DRUGS (3)
  1. ASPIRIN [Suspect]
     Indication: THROMBOSIS PROPHYLAXIS
     Dosage: 75 MG, ORAL
     Route: 048
     Dates: end: 20050511
  2. GLUCOSAMINE [Concomitant]
  3. IBUPROFEN [Concomitant]

REACTIONS (5)
  - DYSPEPSIA [None]
  - EROSIVE DUODENITIS [None]
  - GASTROINTESTINAL ULCER [None]
  - HAEMATEMESIS [None]
  - REFLUX OESOPHAGITIS [None]
